FAERS Safety Report 11683575 (Version 2)
Quarter: 2015Q4

REPORT INFORMATION
  Report Type: Spontaneous
  Country: US (occurrence: US)
  Receive Date: 20151029
  Receipt Date: 20151221
  Transmission Date: 20160304
  Serious: No
  Sender: FDA-Public Use
  Company Number: ALCN2015US006715

PATIENT
  Sex: Male

DRUGS (2)
  1. NEOMYCIN POLYMIXIN [Suspect]
     Active Substance: NEOMYCIN\POLYMYXIN
     Indication: PRODUCT USED FOR UNKNOWN INDICATION
     Dosage: UNK
     Route: 001
     Dates: end: 20151023
  2. CIPRODEX [Suspect]
     Active Substance: CIPROFLOXACIN HYDROCHLORIDE\DEXAMETHASONE
     Indication: PRODUCT USED FOR UNKNOWN INDICATION
     Dosage: UNK
     Route: 001
     Dates: end: 20151023

REACTIONS (3)
  - Wrong drug administered [Recovered/Resolved]
  - No adverse event [Recovered/Resolved]
  - Product commingling [Recovered/Resolved]

NARRATIVE: CASE EVENT DATE: 20151023
